FAERS Safety Report 10515440 (Version 2)
Quarter: 2014Q4

REPORT INFORMATION
  Report Type: Spontaneous
  Country: GB (occurrence: None)
  Receive Date: 20141009
  Receipt Date: 20141030
  Transmission Date: 20150528
  Serious: Yes (Other)
  Sender: FDA-Public Use
  Company Number: GB-DEXPHARM-20140627

PATIENT
  Sex: Female

DRUGS (5)
  1. FRISIUM [Suspect]
     Active Substance: CLOBAZAM
     Indication: EPILEPSY
     Dosage: INITIALLY HALF A TABLET TWICE DAILY?SEP. DOSAGES/ INTERVAL: 2 IN 1 DAYS
     Route: 048
  2. OMEPRAZOLE. [Suspect]
     Active Substance: OMEPRAZOLE
     Indication: GASTROOESOPHAGEAL REFLUX DISEASE
  3. ERYTHROMYCIN. [Suspect]
     Active Substance: ERYTHROMYCIN
     Indication: INFECTION
  4. NEURONTIN [Suspect]
     Active Substance: GABAPENTIN
     Indication: EPILEPSY
  5. INSULIN GLARGINE [Concomitant]
     Active Substance: INSULIN GLARGINE

REACTIONS (8)
  - Seizure [None]
  - Fatigue [None]
  - Lymphoedema [None]
  - Dry mouth [None]
  - Hyperhidrosis [None]
  - Confusional state [None]
  - Cellulitis [None]
  - Infection [None]

NARRATIVE: CASE EVENT DATE: 20140914
